FAERS Safety Report 12846894 (Version 1)
Quarter: 2016Q4

REPORT INFORMATION
  Report Type: Spontaneous
  Country: US (occurrence: US)
  Receive Date: 20161013
  Receipt Date: 20161013
  Transmission Date: 20170207
  Serious: No
  Sender: FDA-Public Use
  Company Number: None

PATIENT
  Sex: Female
  Weight: 66.68 kg

DRUGS (1)
  1. CAPECITABINE. [Suspect]
     Active Substance: CAPECITABINE
     Indication: COLON CANCER
     Route: 048
     Dates: start: 20160523, end: 20160929

REACTIONS (5)
  - General physical health deterioration [None]
  - Rectal haemorrhage [None]
  - Decreased appetite [None]
  - Diarrhoea [None]
  - Eating disorder [None]
